FAERS Safety Report 23943589 (Version 5)
Quarter: 2024Q3

REPORT INFORMATION
  Report Type: Report from Study
  Country: US (occurrence: US)
  Receive Date: 20240606
  Receipt Date: 20240918
  Transmission Date: 20241017
  Serious: Yes (Other)
  Sender: AMGEN
  Company Number: US-AMGEN-USASL2024108729

PATIENT
  Age: 64 Year
  Sex: Male
  Weight: 69.6 kg

DRUGS (15)
  1. VECTIBIX [Suspect]
     Active Substance: PANITUMUMAB
     Indication: Rectal cancer
     Dosage: 517.20 MILLIGRAM, Q2WK (14 DAY, FREQUENCY PER DAY:QD)
     Route: 042
     Dates: start: 20240207, end: 20240509
  2. VECTIBIX [Suspect]
     Active Substance: PANITUMUMAB
     Dosage: 500 MILLIGRAM (100 MG, 5 ML (20 MG/ML) SINGLE-USE VIAL
     Route: 042
     Dates: start: 2024
  3. VECTIBIX [Suspect]
     Active Substance: PANITUMUMAB
     Dosage: 500 MILLIGRAM  (100 ML/HR
     Route: 042
     Dates: start: 2024
  4. VECTIBIX [Suspect]
     Active Substance: PANITUMUMAB
     Dosage: 6 MILLIGRAM/KILOGRAM,450 MILLIGRAM, 100 ML/HR OVER 60 MINUTES
     Route: 042
     Dates: start: 20240806
  5. VECTIBIX [Suspect]
     Active Substance: PANITUMUMAB
     Dosage: 450 MILLIGRAM (100ML/HR)/100 MG, 5 ML (20 MG/ML) SINGLE-USE VIAL
     Route: 042
     Dates: start: 20240903
  6. BEVACIZUMAB [Concomitant]
     Active Substance: BEVACIZUMAB
     Indication: Product used for unknown indication
     Dosage: 25 MILLIGRAM PER MILLILITRE, 16 ML VIAL
     Route: 042
     Dates: start: 20240702
  7. ALOXI [Concomitant]
     Active Substance: PALONOSETRON HYDROCHLORIDE
     Indication: Product used for unknown indication
     Dosage: 250 MICROGRAM, INJECTION, 0.25 MG/5 ML SOLUTION
     Route: 042
     Dates: start: 20240702
  8. DEXAMETHASONE [Concomitant]
     Active Substance: DEXAMETHASONE
     Indication: Product used for unknown indication
     Dosage: 10 MILLIGRAM/50 ML PIGGYBACK
     Route: 042
     Dates: start: 20240702
  9. SODIUM CHLORIDE [Concomitant]
     Active Substance: SODIUM CHLORIDE
     Indication: Product used for unknown indication
     Dosage: PARENTERAL SOLUTION 100 ML BAG/ 100 ML CHEMO IVPB/ 500 ML/HR
     Route: 042
     Dates: start: 20240702
  10. ATROPINE [Concomitant]
     Active Substance: ATROPINE
     Dosage: 0.25 MILLIGRAM
     Route: 042
     Dates: start: 20240903
  11. ADRUCIL [Concomitant]
     Active Substance: FLUOROURACIL
     Dosage: 780 MILLIGRAM
     Route: 042
     Dates: start: 20240903
  12. CAMPTOSAR [Concomitant]
     Active Substance: IRINOTECAN HYDROCHLORIDE
     Dosage: 210 MILLIGRAM (166.7ML/HR)
     Route: 042
     Dates: start: 20240903
  13. LEUCOVORIN [Concomitant]
     Active Substance: LEUCOVORIN\LEUCOVORIN CALCIUM
     Dosage: 780 MILLIGRAM (166.7ML/HR)
     Route: 042
     Dates: start: 20240903
  14. ZIRABEV [Concomitant]
     Active Substance: BEVACIZUMAB-BVZR
     Dosage: 370 MILLIGRAM (200ML/HR)
     Route: 042
     Dates: start: 20240903
  15. DECADRON [Concomitant]
     Active Substance: DEXAMETHASONE
     Dosage: 10 MILLIGRAM (300 ML/HR)
     Route: 042
     Dates: start: 20240903

REACTIONS (1)
  - Rectal cancer [Unknown]

NARRATIVE: CASE EVENT DATE: 20240101
